FAERS Safety Report 16975570 (Version 1)
Quarter: 2019Q4

REPORT INFORMATION
  Report Type: Spontaneous
  Country: US (occurrence: US)
  Receive Date: 20191029
  Receipt Date: 20191029
  Transmission Date: 20200122
  Serious: No
  Sender: FDA-Public Use
  Company Number: None

PATIENT
  Age: 50 Year
  Sex: Female
  Weight: 90 kg

DRUGS (13)
  1. BLACK COHOSH [Concomitant]
     Active Substance: BLACK COHOSH
  2. EMGALITY [Suspect]
     Active Substance: GALCANEZUMAB-GNLM
     Indication: MIGRAINE
     Dates: start: 20191021
  3. AMITRIPTILIN [Concomitant]
     Active Substance: AMITRIPTYLINE HYDROCHLORIDE
  4. CITALOPRAM [Concomitant]
     Active Substance: CITALOPRAM HYDROBROMIDE
  5. LORAZEPAM. [Concomitant]
     Active Substance: LORAZEPAM
  6. AIMOVIG [Suspect]
     Active Substance: ERENUMAB-AOOE
     Indication: MIGRAINE
     Dates: start: 20190421, end: 20191020
  7. OMEPRAZOLE. [Concomitant]
     Active Substance: OMEPRAZOLE
  8. TRAMADOL. [Concomitant]
     Active Substance: TRAMADOL
  9. PROPANOL [Concomitant]
     Active Substance: PROPRANOLOL HYDROCHLORIDE
  10. DICLOFENAC [Concomitant]
     Active Substance: DICLOFENAC
  11. FIBER [Concomitant]
     Active Substance: PSYLLIUM HUSK
  12. SYNTHROID [Concomitant]
     Active Substance: LEVOTHYROXINE SODIUM
  13. LORATADINE. [Concomitant]
     Active Substance: LORATADINE

REACTIONS (6)
  - Constipation [None]
  - Insomnia [None]
  - Alopecia [None]
  - Fear [None]
  - Myalgia [None]
  - Abnormal dreams [None]

NARRATIVE: CASE EVENT DATE: 20191024
